FAERS Safety Report 20953167 (Version 3)
Quarter: 2022Q2

REPORT INFORMATION
  Report Type: Report from Study
  Country: US (occurrence: US)
  Receive Date: 20220613
  Receipt Date: 20220620
  Transmission Date: 20220721
  Serious: Yes (Hospitalization)
  Sender: FDA-Public Use
  Company Number: US-NOVARTISPH-NVSC2022US133347

PATIENT
  Sex: Male

DRUGS (2)
  1. ENTRESTO [Suspect]
     Active Substance: SACUBITRIL\VALSARTAN
     Indication: Cardiac failure
     Dosage: 50 MG, BID (24/26 MG: 50MG: 24.3 MG SACUBITRIL AND 25.7 MG VALSARTAN)
     Route: 048
     Dates: start: 20190601
  2. PREDNISONE [Suspect]
     Active Substance: PREDNISONE
     Indication: Product used for unknown indication
     Dosage: UNK
     Route: 065

REACTIONS (5)
  - Fluid retention [Unknown]
  - Cardiac failure [Recovered/Resolved]
  - Weight increased [Unknown]
  - Rebound effect [Unknown]
  - Incorrect dose administered [Unknown]
